FAERS Safety Report 23090409 (Version 1)
Quarter: 2023Q4

REPORT INFORMATION
  Report Type: Spontaneous
  Country: US (occurrence: None)
  Receive Date: 20231019
  Receipt Date: 20231019
  Transmission Date: 20240110
  Serious: No
  Sender: FDA-Public Use
  Company Number: None

PATIENT
  Sex: Female
  Weight: 73.48 kg

DRUGS (7)
  1. UREA 47% CREAM [Suspect]
     Active Substance: UREA
     Indication: Skin lesion
     Dosage: FREQUENCY : TWICE A DAY;?
     Route: 061
     Dates: start: 202304, end: 202307
  2. LISINOPRIL [Concomitant]
     Active Substance: LISINOPRIL
  3. ATENOLOL [Concomitant]
     Active Substance: ATENOLOL
  4. AMLODIPINE [Concomitant]
     Active Substance: AMLODIPINE BESYLATE
  5. VITAMIN D3 [Concomitant]
     Active Substance: CHOLECALCIFEROL
  6. Vitamin (for women) [Concomitant]
  7. HERBALS\TURMERIC [Concomitant]
     Active Substance: HERBALS\TURMERIC

REACTIONS (2)
  - Application site discolouration [None]
  - Skin discolouration [None]
